FAERS Safety Report 10187086 (Version 1)
Quarter: 2014Q2

REPORT INFORMATION
  Report Type: Spontaneous
  Country: JP (occurrence: JP)
  Receive Date: 20140522
  Receipt Date: 20140522
  Transmission Date: 20141212
  Serious: Yes (Hospitalization)
  Sender: FDA-Public Use
  Company Number: JP-009507513-1405JPN009016

PATIENT
  Age: 44 Year
  Sex: Female

DRUGS (2)
  1. EMEND [Suspect]
     Indication: PROPHYLAXIS OF NAUSEA AND VOMITING
     Dosage: 125 MG, ONCE
     Route: 048
     Dates: start: 2014, end: 2014
  2. EMEND [Suspect]
     Dosage: 80 MG, QD
     Route: 048
     Dates: start: 2014, end: 2014

REACTIONS (6)
  - Lip swelling [Unknown]
  - Decreased appetite [Unknown]
  - Abdominal distension [Unknown]
  - Vomiting [Unknown]
  - Abdominal pain upper [Unknown]
  - Stomatitis [Unknown]
